FAERS Safety Report 9381832 (Version 2)
Quarter: 2013Q3

REPORT INFORMATION
  Report Type: Spontaneous
  Country: GB (occurrence: GB)
  Receive Date: 20130703
  Receipt Date: 20130717
  Transmission Date: 20140515
  Serious: Yes (Death, Life-Threatening, Hospitalization)
  Sender: FDA-Public Use
  Company Number: GB-PFIZER INC-2013193807

PATIENT
  Age: 58 Year
  Sex: Male

DRUGS (2)
  1. BISOPROLOL FUMARATE [Suspect]
     Indication: ARRHYTHMIA SUPRAVENTRICULAR
     Dosage: 3.75 MG, UNK
     Route: 048
  2. VERAPAMIL HCL [Interacting]
     Indication: ARRHYTHMIA SUPRAVENTRICULAR
     Dosage: 240 MG, UNK
     Route: 048

REACTIONS (4)
  - Cardiac failure [Fatal]
  - Drug interaction [Not Recovered/Not Resolved]
  - Dyspnoea [Not Recovered/Not Resolved]
  - Fatigue [Not Recovered/Not Resolved]
